FAERS Safety Report 20094627 (Version 1)
Quarter: 2021Q4

REPORT INFORMATION
  Report Type: Other
  Country: US (occurrence: None)
  Receive Date: 20211122
  Receipt Date: 20211122
  Transmission Date: 20220303
  Serious: Yes (Other)
  Sender: FDA-Public Use
  Company Number: US-ROCHE-2959003

PATIENT

DRUGS (1)
  1. MYCOPHENOLATE MOFETIL [Suspect]
     Active Substance: MYCOPHENOLATE MOFETIL
     Indication: Immunosuppression
     Route: 065

REACTIONS (5)
  - Cytomegalovirus infection [Unknown]
  - Gastrointestinal disorder [Unknown]
  - Leukopenia [Unknown]
  - BK virus infection [Unknown]
  - Infection [Unknown]
